FAERS Safety Report 6172363-0 (Version None)
Quarter: 2009Q2

REPORT INFORMATION
  Report Type: 
  Country: None (occurrence: None)
  Receive Date: 20090429
  Receipt Date: 20090420
  Transmission Date: 20091009
  Serious: Yes (Hospitalization)
  Sender: FDA-Public Use
  Company Number: PHHY2009FR15040

PATIENT
  Sex: Male

DRUGS (7)
  1. COTAREG [Suspect]
     Indication: HYPERTENSION
     Dosage: 1 DF (160/25MG), QD
     Route: 048
  2. ALLOPURINOL [Suspect]
     Indication: HYPERURICAEMIA
     Dosage: 1 DF, QD
     Route: 048
  3. GLUCIDION [Concomitant]
  4. CERNEVIT-12 [Concomitant]
  5. DECAN [Concomitant]
  6. VITAMIN B1 AND B6 [Concomitant]
  7. CIPROFLOXACIN HCL [Concomitant]
     Dosage: UNK
     Route: 048
     Dates: start: 20090104

REACTIONS (11)
  - ALTERED STATE OF CONSCIOUSNESS [None]
  - C-REACTIVE PROTEIN INCREASED [None]
  - COMA [None]
  - DEHYDRATION [None]
  - FALL [None]
  - GASTROENTERITIS [None]
  - IMMOBILE [None]
  - LUNG DISORDER [None]
  - RENAL FAILURE ACUTE [None]
  - RHABDOMYOLYSIS [None]
  - SEPTIC SHOCK [None]
